FAERS Safety Report 23758747 (Version 1)
Quarter: 2024Q2

REPORT INFORMATION
  Report Type: Spontaneous
  Country: US (occurrence: None)
  Receive Date: 20240418
  Receipt Date: 20240418
  Transmission Date: 20240716
  Serious: No
  Sender: FDA-Public Use
  Company Number: US-ROCHE-3384541

PATIENT
  Age: 7 Year
  Sex: Female
  Weight: 41.2 kg

DRUGS (2)
  1. AVASTIN [Suspect]
     Active Substance: BEVACIZUMAB
     Indication: Brain neoplasm
     Dosage: 350 MG INFUSION,10MG/KG
     Route: 042
     Dates: start: 20230705
  2. AVASTIN [Suspect]
     Active Substance: BEVACIZUMAB
     Indication: Palliative care

REACTIONS (2)
  - Off label use [Unknown]
  - No adverse event [Unknown]

NARRATIVE: CASE EVENT DATE: 20230705
